FAERS Safety Report 5737135-7 (Version None)
Quarter: 2008Q2

REPORT INFORMATION
  Report Type: 
  Country: None (occurrence: None)
  Receive Date: 20080513
  Receipt Date: 20080513
  Transmission Date: 20081010
  Serious: Yes (Other)
  Sender: FDA-Public Use
  Company Number: None

PATIENT
  Age: 54 Year
  Sex: Female
  Weight: 66.6788 kg

DRUGS (1)
  1. SIMVASTATIN [Suspect]
     Indication: HYPERCHOLESTEROLAEMIA
     Dosage: 20MG ONCE/DAY PO
     Route: 048
     Dates: start: 20071126, end: 20080304

REACTIONS (4)
  - LIMB INJURY [None]
  - MYOPATHY [None]
  - STRESS FRACTURE [None]
  - TIBIA FRACTURE [None]
